FAERS Safety Report 7427552-1 (Version None)
Quarter: 2011Q2

REPORT INFORMATION
  Report Type: 
  Country: None (occurrence: None)
  Receive Date: 20110420
  Receipt Date: 20110414
  Transmission Date: 20111010
  Serious: Yes (Hospitalization, Other)
  Sender: FDA-Public Use
  Company Number: US-MERCK-1101USA01770

PATIENT
  Age: 66 Year
  Sex: Female
  Weight: 80 kg

DRUGS (4)
  1. FOSAMAX [Suspect]
     Route: 048
     Dates: start: 20041228, end: 20100901
  2. VITAMINS (UNSPECIFIED) [Concomitant]
     Route: 065
  3. CALTRATE [Concomitant]
     Route: 065
  4. FOSAMAX [Suspect]
     Route: 048
     Dates: start: 20061030

REACTIONS (9)
  - LACTOBACILLUS INFECTION [None]
  - FEMUR FRACTURE [None]
  - FALL [None]
  - WOUND INFECTION STAPHYLOCOCCAL [None]
  - MALIGNANT MELANOMA [None]
  - PAIN IN EXTREMITY [None]
  - OSTEOARTHRITIS [None]
  - FOOT FRACTURE [None]
  - ARTHRALGIA [None]
